FAERS Safety Report 18110704 (Version 5)
Quarter: 2020Q4

REPORT INFORMATION
  Report Type: Report from Study
  Country: ES (occurrence: ES)
  Receive Date: 20200804
  Receipt Date: 20201030
  Transmission Date: 20210113
  Serious: Yes (Death, Hospitalization, Other)
  Sender: FDA-Public Use
  Company Number: ES-BRISTOL-MYERS SQUIBB COMPANY-BMS-2020-060103

PATIENT
  Age: 59 Year
  Sex: Male

DRUGS (5)
  1. NIVOLUMAB [Suspect]
     Active Substance: NIVOLUMAB
     Indication: SOLITARY FIBROUS TUMOUR
     Dosage: 240 MILLIGRAM, Q2WK
     Route: 042
     Dates: start: 20200612, end: 20200723
  2. MEGESTROL [Concomitant]
     Active Substance: MEGESTROL
     Indication: INCREASED APPETITE
     Dosage: UNK
     Route: 048
     Dates: start: 20200709
  3. FUROSEMIDA [FUROSEMIDE] [Concomitant]
     Active Substance: FUROSEMIDE
     Indication: DYSLIPIDAEMIA
     Dosage: UNK
     Route: 048
     Dates: start: 20200709
  4. SUNITINIB MALATE. [Suspect]
     Active Substance: SUNITINIB MALATE
     Indication: SOLITARY FIBROUS TUMOUR
     Dosage: 37.5 MILLIGRAM, QD
     Route: 065
     Dates: start: 20200612, end: 20200625
  5. SUNITINIB MALATE. [Suspect]
     Active Substance: SUNITINIB MALATE
     Dosage: 25 MILLIGRAM, QD
     Route: 065
     Dates: start: 20200626, end: 20200723

REACTIONS (7)
  - Malaise [Recovered/Resolved]
  - Toxicity to various agents [Unknown]
  - General physical health deterioration [Unknown]
  - Malignant neoplasm progression [Fatal]
  - Anaemia macrocytic [Recovered/Resolved]
  - Renal failure [Recovered/Resolved]
  - Abdominal distension [Unknown]

NARRATIVE: CASE EVENT DATE: 20200723
